FAERS Safety Report 5386837-3 (Version None)
Quarter: 2007Q3

REPORT INFORMATION
  Report Type: 
  Country: None (occurrence: None)
  Receive Date: 20070713
  Receipt Date: 20070711
  Transmission Date: 20080115
  Serious: Yes (Hospitalization)
  Sender: FDA-Public Use
  Company Number: US-ROXANE LABORATORIES, INC-2007-BP-17118RO

PATIENT
  Age: 33 Year
  Sex: Female

DRUGS (7)
  1. LITHIUM CARBONATE [Suspect]
     Indication: PSYCHOTIC DISORDER
  2. LORAZEPAM [Suspect]
     Route: 042
  3. QUETIAPINE FUMARATE [Suspect]
     Indication: INSOMNIA
  4. QUETIAPINE FUMARATE [Suspect]
     Indication: PSYCHOTIC DISORDER
  5. RISPERIDONE [Suspect]
     Indication: PSYCHOTIC DISORDER
  6. HALOPERIDOL [Suspect]
     Indication: PSYCHOTIC DISORDER
  7. BENZOTROPINE [Suspect]
     Indication: PSYCHOTIC DISORDER

REACTIONS (14)
  - ABNORMAL BEHAVIOUR [None]
  - AREFLEXIA [None]
  - BLOOD CREATINE PHOSPHOKINASE INCREASED [None]
  - CATATONIA [None]
  - CONFUSIONAL STATE [None]
  - DRUG INEFFECTIVE [None]
  - EYELID DISORDER [None]
  - LACK OF SPONTANEOUS SPEECH [None]
  - MUSCLE RIGIDITY [None]
  - NEUROLEPTIC MALIGNANT SYNDROME [None]
  - PYREXIA [None]
  - TACHYCARDIA [None]
  - UNRESPONSIVE TO STIMULI [None]
  - VISUAL TRACKING TEST ABNORMAL [None]
